FAERS Safety Report 21200711 (Version 1)
Quarter: 2022Q3

REPORT INFORMATION
  Report Type: Spontaneous
  Country: DK (occurrence: DK)
  Receive Date: 20220811
  Receipt Date: 20220811
  Transmission Date: 20221026
  Serious: Yes (Hospitalization, Disabling)
  Sender: FDA-Public Use
  Company Number: None

PATIENT
  Age: 81 Year
  Sex: Male

DRUGS (1)
  1. RIVAROXABAN [Suspect]
     Active Substance: RIVAROXABAN
     Indication: Bradycardia
     Dosage: 15 MG, QD
     Route: 048
     Dates: start: 20160713

REACTIONS (5)
  - Hemiparesis [Not Recovered/Not Resolved]
  - Cerebral haemorrhage [Recovering/Resolving]
  - Facial paralysis [Unknown]
  - Cognitive disorder [Not Recovered/Not Resolved]
  - Speech disorder [Unknown]

NARRATIVE: CASE EVENT DATE: 20200101
